FAERS Safety Report 6060149-7 (Version None)
Quarter: 2009Q1

REPORT INFORMATION
  Report Type: 
  Country: None (occurrence: None)
  Receive Date: 20090127
  Receipt Date: 20090113
  Transmission Date: 20090719
  Serious: Yes (Other)
  Sender: FDA-Public Use
  Company Number: 100#03#2009-00156

PATIENT
  Age: 77 Year
  Sex: Female

DRUGS (18)
  1. ALENDRONIC ACID (ALENDRONIC ACID) [Suspect]
     Indication: OSTEOPOROSIS
     Dosage: 70 MG
     Route: 048
     Dates: start: 20080601, end: 20081001
  2. AMOXICILLIN [Concomitant]
  3. CALCIUM CARBONATE (CALCIUM CARBONATE) [Concomitant]
  4. COLECALCIFEROL (COLECALCIFEROL) [Concomitant]
  5. DOCUSATE SODIUM (DOCUSATE SODIUM) [Concomitant]
  6. FLOXACILLIN SODIUM [Concomitant]
  7. FUROSEMIDE (FUROSEMIDE) [Concomitant]
  8. NICORANDIL (NICORANDIL) [Concomitant]
  9. OMEPRAZOLE [Concomitant]
  10. ORAMORPH (MORPHINE) [Concomitant]
  11. ACETAMINOPHEN [Concomitant]
  12. PREDNISOLONE [Concomitant]
  13. SALBUTAMOL (SALBUTAMOL) [Concomitant]
  14. SENNA (UNKNOWN) [Concomitant]
  15. SERETIDE (FLUTICASONE, SALMETEROL) [Concomitant]
  16. SIMVASTATIN [Concomitant]
  17. TIOTROPIUM BROMIDE (TIOTROPIUM BROMIDE) [Concomitant]
  18. TRIMETHOPRIM [Concomitant]

REACTIONS (6)
  - DYSPNOEA [None]
  - GASTRITIS [None]
  - HYPERSENSITIVITY [None]
  - LIP SWELLING [None]
  - MOBILITY DECREASED [None]
  - OESOPHAGITIS [None]
